FAERS Safety Report 6736492-2 (Version None)
Quarter: 2010Q2

REPORT INFORMATION
  Report Type: 
  Country: None (occurrence: None)
  Receive Date: 20100521
  Receipt Date: 20100512
  Transmission Date: 20101027
  Serious: Yes (Other)
  Sender: FDA-Public Use
  Company Number: US-SANOFI-AVENTIS-2010SA028052

PATIENT
  Age: 64 Year
  Sex: Female

DRUGS (1)
  1. LANTUS [Suspect]
     Indication: DIABETES MELLITUS
     Dosage: 15-16 UNITS ONCE A DAY
     Route: 058
     Dates: start: 20080101

REACTIONS (3)
  - FALL [None]
  - HAND FRACTURE [None]
  - UPPER LIMB FRACTURE [None]
